FAERS Safety Report 4839222-4 (Version None)
Quarter: 2005Q4

REPORT INFORMATION
  Report Type: 
  Country: None (occurrence: None)
  Receive Date: 20051129
  Receipt Date: 20051118
  Transmission Date: 20060501
  Serious: Yes (Other)
  Sender: FDA-Public Use
  Company Number: DE-BRISTOL-MYERS SQUIBB COMPANY-13187521

PATIENT
  Age: 42 Year
  Sex: Female
  Weight: 95 kg

DRUGS (5)
  1. ABILIFY [Suspect]
     Indication: SCHIZOPHRENIA
     Dosage: 15 MG 04NOV05 TO 08NOV05; 30 MG 08NOV05 TO 14NOV05; 15 MG ON 15NOV05
     Route: 048
     Dates: start: 20051108, end: 20051114
  2. METOPROLOL [Concomitant]
  3. VENLAFAXINE HCL [Concomitant]
     Dates: start: 20050101
  4. SOLIAN [Concomitant]
  5. SEROQUEL [Concomitant]
     Dosage: REDUCED TO 200 MG

REACTIONS (2)
  - RESTLESSNESS [None]
  - TACHYCARDIA [None]
